FAERS Safety Report 6937997-1 (Version None)
Quarter: 2010Q3

REPORT INFORMATION
  Report Type: 
  Country: None (occurrence: None)
  Receive Date: 20100824
  Receipt Date: 20100812
  Transmission Date: 20110219
  Serious: No
  Sender: FDA-Public Use
  Company Number: 2008BI016045

PATIENT
  Sex: Female

DRUGS (2)
  1. TYSABRI [Suspect]
     Indication: MULTIPLE SCLEROSIS
     Route: 042
     Dates: start: 20080307, end: 20080606
  2. TYSABRI [Suspect]
     Route: 042
     Dates: start: 20050221, end: 20050221

REACTIONS (8)
  - DRUG SPECIFIC ANTIBODY PRESENT [None]
  - GAIT DISTURBANCE [None]
  - GENERAL SYMPTOM [None]
  - HYPERSENSITIVITY [None]
  - INFLUENZA LIKE ILLNESS [None]
  - MUSCLE TWITCHING [None]
  - RESTLESS LEGS SYNDROME [None]
  - TEMPERATURE INTOLERANCE [None]
